FAERS Safety Report 6642449-2 (Version None)
Quarter: 2010Q1

REPORT INFORMATION
  Report Type: 
  Country: None (occurrence: None)
  Receive Date: 20100319
  Receipt Date: 20100311
  Transmission Date: 20100710
  Serious: Yes (Other)
  Sender: FDA-Public Use
  Company Number: JP-PFIZER INC-2010033664

PATIENT
  Sex: Male

DRUGS (2)
  1. CADUET [Suspect]
     Indication: HYPERTENSION
     Route: 048
  2. CADUET [Suspect]
     Indication: HYPERLIPIDAEMIA

REACTIONS (1)
  - BURSITIS [None]
